FAERS Safety Report 5546125-9 (Version None)
Quarter: 2007Q4

REPORT INFORMATION
  Report Type: 
  Country: None (occurrence: None)
  Receive Date: 20071211
  Receipt Date: 20071112
  Transmission Date: 20080405
  Serious: No
  Sender: FDA-Public Use
  Company Number: US-BRISTOL-MYERS SQUIBB COMPANY-13979505

PATIENT
  Age: 53 Year
  Sex: Female

DRUGS (2)
  1. EMSAM [Suspect]
     Indication: DEPRESSION
     Dosage: STARTED 6MG/24 HOUR TRANSDERMAL PATCH ON 10 MAY 2007
     Route: 062
     Dates: start: 20070510, end: 20071004
  2. DIAZEPAM [Concomitant]

REACTIONS (6)
  - BALANCE DISORDER [None]
  - DIZZINESS [None]
  - GENERALISED OEDEMA [None]
  - NAUSEA [None]
  - SENSATION OF FOREIGN BODY [None]
  - THROAT TIGHTNESS [None]
